FAERS Safety Report 4398261-0 (Version None)
Quarter: 2004Q2

REPORT INFORMATION
  Report Type: 
  Country: None (occurrence: None)
  Receive Date: 20040621
  Receipt Date: 20031218
  Transmission Date: 20050107
  Serious: Yes (Other)
  Sender: FDA-Public Use
  Company Number: USA-2003-0012165

PATIENT
  Age: 51 Year
  Sex: Female

DRUGS (7)
  1. OXYCONTIN [Suspect]
     Dosage: MG
     Dates: start: 19960601, end: 20010501
  2. OXYIR [Concomitant]
  3. SOMA [Concomitant]
  4. LASIX [Concomitant]
  5. XANAX [Concomitant]
  6. RELAFEN [Concomitant]
  7. VIOXX [Concomitant]

REACTIONS (20)
  - ARTHRALGIA [None]
  - ASTHENIA [None]
  - BACK PAIN [None]
  - DEPRESSION [None]
  - DIARRHOEA [None]
  - DRUG DEPENDENCE [None]
  - DRUG WITHDRAWAL SYNDROME [None]
  - GENERALISED ANXIETY DISORDER [None]
  - HEADACHE [None]
  - HYPERHIDROSIS [None]
  - INSOMNIA [None]
  - IRRITABILITY [None]
  - NAUSEA [None]
  - NERVOUSNESS [None]
  - NEUROPATHY PERIPHERAL [None]
  - PAIN IN EXTREMITY [None]
  - PANIC ATTACK [None]
  - TREMOR [None]
  - VOMITING [None]
  - WEIGHT DECREASED [None]
